FAERS Safety Report 9817611 (Version 1)
Quarter: 2013Q4

REPORT INFORMATION
  Report Type: Spontaneous
  Country: US (occurrence: None)
  Receive Date: 20131223
  Receipt Date: 20131223
  Transmission Date: 20140711
  Serious: Yes (Other)
  Sender: FDA-Public Use
  Company Number: 219224

PATIENT
  Age: 82 Year
  Sex: Female

DRUGS (1)
  1. PICATO [Suspect]
     Indication: PRECANCEROUS CELLS PRESENT
     Dates: start: 20120925, end: 20120926

REACTIONS (1)
  - Rash [None]
